FAERS Safety Report 12577107 (Version 2)
Quarter: 2016Q3

REPORT INFORMATION
  Report Type: Report from Study
  Country: PR (occurrence: PR)
  Receive Date: 20160720
  Receipt Date: 20160831
  Transmission Date: 20161109
  Serious: Yes (Other)
  Sender: FDA-Public Use
  Company Number: PR-ABBVIE-16K-131-1675480-00

PATIENT
  Age: 51 Year
  Sex: Female
  Weight: 69.46 kg

DRUGS (8)
  1. PROZAC [Concomitant]
     Active Substance: FLUOXETINE HYDROCHLORIDE
     Indication: DEPRESSION
     Route: 048
     Dates: start: 2010
  2. CANNABIS DROPS [Concomitant]
     Indication: PAIN
  3. FOLIC ACID. [Concomitant]
     Active Substance: FOLIC ACID
     Indication: RHEUMATOID ARTHRITIS
     Route: 048
     Dates: start: 2011
  4. HUMIRA [Suspect]
     Active Substance: ADALIMUMAB
     Indication: RHEUMATOID ARTHRITIS
     Route: 058
     Dates: start: 201202, end: 20160627
  5. LOSARTAN. [Concomitant]
     Active Substance: LOSARTAN
     Indication: HYPERTENSION
     Dosage: 100/25MG
     Route: 048
     Dates: start: 2011
  6. KLONOPIN [Concomitant]
     Active Substance: CLONAZEPAM
     Indication: ANXIETY
     Route: 048
     Dates: start: 201602
  7. METHOTREXATE. [Concomitant]
     Active Substance: METHOTREXATE
     Indication: RHEUMATOID ARTHRITIS
     Route: 048
     Dates: start: 2012
  8. CANNABIS DROPS [Concomitant]
     Indication: ARTHRALGIA
     Route: 060
     Dates: start: 201607

REACTIONS (14)
  - Encephalitis [Not Recovered/Not Resolved]
  - Amnesia [Recovering/Resolving]
  - Nervous system disorder [Not Recovered/Not Resolved]
  - Arthralgia [Recovering/Resolving]
  - Ocular hyperaemia [Recovering/Resolving]
  - Pyrexia [Recovering/Resolving]
  - Rash [Recovering/Resolving]
  - Disorientation [Recovering/Resolving]
  - Skin discolouration [Recovered/Resolved]
  - Headache [Not Recovered/Not Resolved]
  - Asthenia [Recovering/Resolving]
  - Flavivirus infection [Unknown]
  - Retinal infarction [Recovered/Resolved]
  - Blindness unilateral [Recovered/Resolved]

NARRATIVE: CASE EVENT DATE: 2014
